FAERS Safety Report 4277312-8 (Version None)
Quarter: 2004Q1

REPORT INFORMATION
  Report Type: 
  Country: None (occurrence: None)
  Receive Date: 20040120
  Receipt Date: 20040105
  Transmission Date: 20041129
  Serious: Yes (Other)
  Sender: FDA-Public Use
  Company Number: 2003112858

PATIENT
  Sex: Male

DRUGS (1)
  1. LIPITOR [Suspect]
     Indication: ILL-DEFINED DISORDER
     Dosage: NO DRUG

REACTIONS (4)
  - LEFT VENTRICULAR FAILURE [None]
  - MYOCARDIAL ISCHAEMIA [None]
  - NECROSIS [None]
  - RHABDOMYOLYSIS [None]
